FAERS Safety Report 9768922 (Version 1)
Quarter: 2013Q4

REPORT INFORMATION
  Report Type: Spontaneous
  Country: FR (occurrence: None)
  Receive Date: 20131216
  Receipt Date: 20131216
  Transmission Date: 20140711
  Serious: Yes (Other)
  Sender: FDA-Public Use
  Company Number: SP07299

PATIENT
  Age: 58 Year
  Sex: Female

DRUGS (1)
  1. OSMOPREP [Suspect]
     Indication: BOWEL PREPARATION
     Route: 048
     Dates: start: 2011, end: 2011

REACTIONS (2)
  - Quadriparesis [None]
  - Aphasia [None]
